FAERS Safety Report 4854057-4 (Version None)
Quarter: 2005Q4

REPORT INFORMATION
  Report Type: 
  Country: None (occurrence: None)
  Receive Date: 20051214
  Receipt Date: 20050518
  Transmission Date: 20060501
  Serious: Yes (Hospitalization, Disabling)
  Sender: FDA-Public Use
  Company Number: US-MERCK-0505USA02283

PATIENT
  Age: 56 Year
  Sex: Female
  Weight: 59 kg

DRUGS (1)
  1. VIOXX [Suspect]
     Indication: ARTHRITIS
     Route: 048
     Dates: start: 19990101, end: 20001207

REACTIONS (26)
  - AMNESIA [None]
  - ATRIAL SEPTAL DEFECT ACQUIRED [None]
  - BACK PAIN [None]
  - BONE PAIN [None]
  - CARDIAC ANEURYSM [None]
  - CEREBRAL DISORDER [None]
  - CEREBROVASCULAR ACCIDENT [None]
  - CONVULSION [None]
  - DEPRESSION [None]
  - DIASTOLIC DYSFUNCTION [None]
  - DYSPNOEA [None]
  - EPILEPSY [None]
  - EXOSTOSIS [None]
  - FEMUR FRACTURE [None]
  - HYPERTENSION [None]
  - INTERVERTEBRAL DISC DEGENERATION [None]
  - INTERVERTEBRAL DISC PROTRUSION [None]
  - JOINT SPRAIN [None]
  - JOINT SWELLING [None]
  - MUSCLE SPASMS [None]
  - OSTEOPOROSIS [None]
  - PATHOLOGICAL FRACTURE [None]
  - POLYTRAUMATISM [None]
  - SCOLIOSIS [None]
  - SPINAL COMPRESSION FRACTURE [None]
  - WEIGHT INCREASED [None]
